FAERS Safety Report 7076715-6 (Version None)
Quarter: 2010Q4

REPORT INFORMATION
  Report Type: 
  Country: None (occurrence: None)
  Receive Date: 20101022
  Receipt Date: 20101015
  Transmission Date: 20110411
  Serious: Yes (Other)
  Sender: FDA-Public Use
  Company Number: US-000135

PATIENT
  Age: 70 Year
  Sex: Female

DRUGS (9)
  1. TRAZODONE HCL [Suspect]
     Indication: PRODUCT USED FOR UNKNOWN INDICATION
     Dosage: 150 MG QD ORAL
     Route: 048
     Dates: start: 20100101, end: 20100101
  2. PLAVIX [Concomitant]
  3. OMEPRAZOLE [Concomitant]
  4. RELAFEN [Concomitant]
  5. LISINOPRIL [Concomitant]
  6. OXCARBAZEPINE [Concomitant]
  7. HYDROCHLOROTHIAZIDE [Concomitant]
  8. ASPIRIN [Concomitant]
  9. GEMFIBROZIL [Concomitant]

REACTIONS (2)
  - CEREBROVASCULAR ACCIDENT [None]
  - SEDATION [None]
